FAERS Safety Report 4742852-1 (Version None)
Quarter: 2005Q3

REPORT INFORMATION
  Report Type: 
  Country: None (occurrence: None)
  Receive Date: 20050811
  Receipt Date: 20050803
  Transmission Date: 20060218
  Serious: Yes (Hospitalization, Other)
  Sender: FDA-Public Use
  Company Number: 2005UW11415

PATIENT
  Age: 42 Year
  Sex: Female

DRUGS (2)
  1. ELAVIL [Suspect]
     Indication: DEPRESSION
     Route: 048
  2. ERYTHROMYCIN [Interacting]
     Indication: UPPER RESPIRATORY TRACT INFECTION
     Route: 048

REACTIONS (6)
  - BLOOD PRESSURE DECREASED [None]
  - DRUG INTERACTION [None]
  - ELECTROCARDIOGRAM QT PROLONGED [None]
  - PALPITATIONS [None]
  - SYNCOPE [None]
  - TORSADE DE POINTES [None]
